FAERS Safety Report 6276306-0 (Version None)
Quarter: 2009Q3

REPORT INFORMATION
  Report Type: 
  Country: None (occurrence: None)
  Receive Date: 20090720
  Receipt Date: 20090703
  Transmission Date: 20100115
  Serious: Yes (Hospitalization)
  Sender: FDA-Public Use
  Company Number: DSA_34012_2009

PATIENT
  Age: 82 Year
  Sex: Female

DRUGS (15)
  1. DILTIAZEM [Suspect]
     Indication: DRUG USE FOR UNKNOWN INDICATION
     Dosage: DF, DF
     Dates: start: 20090424, end: 20090524
  2. DILTIAZEM [Suspect]
     Indication: DRUG USE FOR UNKNOWN INDICATION
     Dosage: DF, DF
     Dates: start: 20090602, end: 20090605
  3. COLCHIMAX/01722001/ (COLCHIMAX - TIEMONIUM + OPIUM + COLCHICINE) 63.5 [Suspect]
     Indication: DRUG USE FOR UNKNOWN INDICATION
     Dosage: DF ORAL
     Route: 048
     Dates: start: 20090501, end: 20090605
  4. LUMIRELAX/ 01313101/ (LUMIRELAX - METHOCARBAMOL) [Suspect]
     Dosage: DF
     Dates: start: 20090525, end: 20090605
  5. KARDEGIC/00002703 [Concomitant]
  6. KENZEN [Concomitant]
  7. LEXOMIL [Concomitant]
  8. MOLSIDOMINE [Concomitant]
  9. SPASFON [Concomitant]
  10. TIORFAN [Concomitant]
  11. OMEPRAZOLE [Concomitant]
  12. LAMALINE [Concomitant]
  13. STRUCTUM [Concomitant]
  14. PAROXETINE HCL [Concomitant]
  15. TEMESTA [Concomitant]

REACTIONS (1)
  - RASH MACULO-PAPULAR [None]
